FAERS Safety Report 23180414 (Version 1)
Quarter: 2023Q4

REPORT INFORMATION
  Report Type: Spontaneous
  Country: CN (occurrence: CN)
  Receive Date: 20231114
  Receipt Date: 20231114
  Transmission Date: 20240110
  Serious: Yes (Other)
  Sender: FDA-Public Use
  Company Number: None

PATIENT
  Age: 51 Year
  Sex: Female
  Weight: 55 kg

DRUGS (8)
  1. CYCLOPHOSPHAMIDE [Suspect]
     Active Substance: CYCLOPHOSPHAMIDE
     Indication: Breast cancer female
     Dosage: 0.9 G , ONE TIME IN ONE DAY, DILUTED WITH 50 ML OF 0.9% OF SODIUM CHLORIDE, D2
     Route: 041
     Dates: start: 20231007, end: 20231007
  2. SODIUM CHLORIDE [Suspect]
     Active Substance: SODIUM CHLORIDE
     Indication: Medication dilution
     Dosage: 50 ML, ONE TIME IN ONE DAY, USED TO DILUTE 0.9 G OF CYCLOPHOSPHAMIDE, D2
     Route: 041
     Dates: start: 20231007, end: 20231007
  3. SODIUM CHLORIDE [Suspect]
     Active Substance: SODIUM CHLORIDE
     Dosage: 250 ML, ONE TIME IN ONE DAY, USED TO DILUTE 110 MG OF DOCETAXEL, D2
     Route: 041
     Dates: start: 20231007, end: 20231007
  4. SODIUM CHLORIDE [Suspect]
     Active Substance: SODIUM CHLORIDE
     Dosage: 250 ML, ONE TIME IN ONE DAY, USED TO DILUTE 410 MG OF TRASTUZUMAB, D1
     Route: 041
     Dates: start: 20231006, end: 20231006
  5. DOCETAXEL [Suspect]
     Active Substance: DOCETAXEL\DOCETAXEL ANHYDROUS
     Indication: Breast cancer female
     Dosage: 110 MG , ONE TIME IN ONE DAY, DILUTED WITH 250 ML OF 0.9% OF SODIUM CHLORIDE, D2
     Route: 041
     Dates: start: 20231007, end: 20231007
  6. TRASTUZUMAB [Suspect]
     Active Substance: TRASTUZUMAB
     Indication: Breast cancer female
     Dosage: 410 MG , ONE TIME IN ONE DAY, DILUTED WITH 250 ML OF 0.9% OF SODIUM CHLORIDE, D1
     Route: 041
     Dates: start: 20231006, end: 20231006
  7. TRASTUZUMAB [Suspect]
     Active Substance: TRASTUZUMAB
     Dosage: 410 MG , ONE TIME IN ONE DAY, DILUTED WITH 250 ML OF 0.9% OF SODIUM CHLORIDE, D1
     Route: 041
     Dates: start: 20231006, end: 20231006
  8. TRASTUZUMAB [Suspect]
     Active Substance: TRASTUZUMAB
     Dosage: 410 MG , ONE TIME IN ONE DAY, DILUTED WITH 250 ML OF 0.9% OF SODIUM CHLORIDE, D1
     Route: 041
     Dates: start: 20231006, end: 20231006

REACTIONS (2)
  - Myelosuppression [Recovered/Resolved]
  - Pyrexia [Recovered/Resolved]

NARRATIVE: CASE EVENT DATE: 20231012
